FAERS Safety Report 8836985 (Version 2)
Quarter: 2013Q1

REPORT INFORMATION
  Report Type: Spontaneous
  Country: IE (occurrence: IE)
  Receive Date: 20121011
  Receipt Date: 20130329
  Transmission Date: 20140127
  Serious: Yes (Hospitalization)
  Sender: FDA-Public Use
  Company Number: IE-US-EMD SERONO, INC.-7134955

PATIENT
  Age: 57 Year
  Sex: Female

DRUGS (3)
  1. REBIF [Suspect]
     Indication: RELAPSING-REMITTING MULTIPLE SCLEROSIS
     Route: 058
     Dates: start: 20120521, end: 20120521
  2. REBIF [Suspect]
     Route: 058
     Dates: start: 20120521
  3. REBIF [Suspect]
     Route: 058
     Dates: end: 20121218

REACTIONS (4)
  - Back pain [Not Recovered/Not Resolved]
  - Arthralgia [Not Recovered/Not Resolved]
  - Arthritis [Unknown]
  - Influenza like illness [Not Recovered/Not Resolved]
